FAERS Safety Report 6177085-8 (Version None)
Quarter: 2009Q2

REPORT INFORMATION
  Report Type: 
  Country: None (occurrence: None)
  Receive Date: 20090430
  Receipt Date: 20090430
  Transmission Date: 20091009
  Serious: Yes (Life-Threatening, Hospitalization, Other)
  Sender: FDA-Public Use
  Company Number: None

PATIENT
  Age: 58 Year
  Sex: Female
  Weight: 64.8644 kg

DRUGS (1)
  1. AZITHROMYCIN [Suspect]
     Indication: BRONCHITIS
     Dosage: DOUBLE DOSE FOR FIRST DOSAGE DAILY PO
     Route: 048
     Dates: start: 20090424, end: 20090424

REACTIONS (5)
  - DIARRHOEA [None]
  - DYSSTASIA [None]
  - FALL [None]
  - MALAISE [None]
  - MUSCLE DISORDER [None]
